FAERS Safety Report 20895454 (Version 1)
Quarter: 2022Q2

REPORT INFORMATION
  Report Type: Other
  Country: US (occurrence: None)
  Receive Date: 20220531
  Receipt Date: 20220531
  Transmission Date: 20220721
  Serious: Yes (Death, Other)
  Sender: FDA-Public Use
  Company Number: US-ROCHE-2992676

PATIENT
  Age: 57 Year
  Sex: Female

DRUGS (20)
  1. XELODA [Suspect]
     Active Substance: CAPECITABINE
     Indication: Non-small cell lung cancer
     Dosage: TAKE 3 TABLETS BY MOUTH 2 TIMES DAILY FOR HER-2 + NSCLC?TAKE 3 TABLET(S) BY MOUTH TWICE A DAY 2 WEEK
     Route: 048
     Dates: start: 19621111
  2. XELODA [Suspect]
     Active Substance: CAPECITABINE
     Indication: Metastases to meninges
     Dosage: TWICE A DAY, DAYS 1-14/21 DAYS
     Route: 048
  3. XELODA [Suspect]
     Active Substance: CAPECITABINE
     Indication: Breast cancer metastatic
  4. XELODA [Suspect]
     Active Substance: CAPECITABINE
     Indication: Lung neoplasm malignant
  5. XELODA [Suspect]
     Active Substance: CAPECITABINE
     Indication: Metastatic neoplasm
  6. AVASTIN [Suspect]
     Active Substance: BEVACIZUMAB
     Indication: Product used for unknown indication
     Route: 065
  7. TRASTUZUMAB [Suspect]
     Active Substance: TRASTUZUMAB
     Indication: Product used for unknown indication
     Route: 065
  8. ERLOTINIB [Suspect]
     Active Substance: ERLOTINIB
     Indication: Product used for unknown indication
     Route: 048
  9. ASCORBIC ACID [Concomitant]
     Active Substance: ASCORBIC ACID
  10. COLLAGEN [Concomitant]
     Active Substance: COLLAGEN
  11. TRIMETAZIDINE [Concomitant]
     Active Substance: TRIMETAZIDINE
  12. METHOTREXATE [Concomitant]
     Active Substance: METHOTREXATE
     Route: 065
  13. LAPATINIB [Concomitant]
     Active Substance: LAPATINIB
     Dosage: 1250 QD
     Route: 065
  14. DECADRON [Concomitant]
     Active Substance: DEXAMETHASONE
  15. OXYCODONE [Concomitant]
     Active Substance: OXYCODONE
  16. SODIUM CHLORIDE [Concomitant]
     Active Substance: SODIUM CHLORIDE
  17. ACETAMINOPHEN [Concomitant]
     Active Substance: ACETAMINOPHEN
  18. VITAMIN D3 [Concomitant]
     Active Substance: CHOLECALCIFEROL
  19. COD LIVER OIL [Concomitant]
     Active Substance: COD LIVER OIL
  20. ETOPOSIDE [Concomitant]
     Active Substance: ETOPOSIDE
     Route: 065

REACTIONS (31)
  - Death [Fatal]
  - Off label use [Unknown]
  - Hypoaesthesia [Unknown]
  - Balance disorder [Unknown]
  - Neck pain [Unknown]
  - Musculoskeletal stiffness [Unknown]
  - Dysphagia [Unknown]
  - Muscular weakness [Unknown]
  - Anxiety [Unknown]
  - Depression [Unknown]
  - Fatigue [Unknown]
  - Alopecia [Unknown]
  - Metastasis [Unknown]
  - Back pain [Unknown]
  - Arthralgia [Unknown]
  - Lumbar radiculopathy [Unknown]
  - Musculoskeletal stiffness [Unknown]
  - Lung cancer metastatic [Fatal]
  - Diarrhoea [Unknown]
  - Headache [Unknown]
  - Rash [Unknown]
  - Oedema peripheral [Unknown]
  - Vomiting [Unknown]
  - Dry skin [Unknown]
  - Mucosal inflammation [Unknown]
  - Nausea [Unknown]
  - Thrombocytopenia [Unknown]
  - Neuropathy peripheral [Unknown]
  - Nephropathy toxic [Unknown]
  - Central nervous system lesion [Unknown]
  - Ill-defined disorder [Unknown]

NARRATIVE: CASE EVENT DATE: 20191121
